FAERS Safety Report 5563349-5 (Version None)
Quarter: 2007Q4

REPORT INFORMATION
  Report Type: 
  Country: None (occurrence: None)
  Receive Date: 20071217
  Receipt Date: 20071210
  Transmission Date: 20080405
  Serious: Yes (Hospitalization)
  Sender: FDA-Public Use
  Company Number: PHBS2007FR20767

PATIENT
  Age: 71 Year
  Sex: Male

DRUGS (2)
  1. METHYLERGONOVINE MALEATE [Suspect]
     Dosage: 0.4 MG, ONCE/SINGLE
     Route: 042
  2. ACE INHIBITOR NOS [Concomitant]
     Indication: HYPERTENSION

REACTIONS (4)
  - DYSPNOEA [None]
  - MITRAL VALVE INCOMPETENCE [None]
  - MITRAL VALVE REPLACEMENT [None]
  - PULMONARY ARTERIAL PRESSURE INCREASED [None]
